FAERS Safety Report 10182070 (Version 2)
Quarter: 2014Q3

REPORT INFORMATION
  Report Type: Spontaneous
  Country: GB (occurrence: GB)
  Receive Date: 20140520
  Receipt Date: 20140812
  Transmission Date: 20150326
  Serious: Yes (Hospitalization)
  Sender: FDA-Public Use
  Company Number: GB-ROCHE-1398769

PATIENT
  Age: 67 Year
  Sex: Male
  Weight: 62 kg

DRUGS (8)
  1. TRUVADA [Concomitant]
     Active Substance: EMTRICITABINE\TENOFOVIR DISOPROXIL FUMARATE
     Indication: RETROVIRAL INFECTION
     Dosage: DOSAGE FORM: UNSPECIFIED, T DAILY
     Route: 065
  2. PEGINTERFERON ALFA-2B [Suspect]
     Active Substance: PEGINTERFERON ALFA-2B
     Indication: HEPATITIS C
     Route: 065
     Dates: start: 20140124, end: 20140711
  3. DOMPERIDONE [Concomitant]
     Active Substance: DOMPERIDONE
     Indication: NAUSEA
     Route: 065
  4. EFAVIRENZ [Concomitant]
     Active Substance: EFAVIRENZ
     Indication: RETROVIRAL INFECTION
     Dosage: DOSAGE FORM: TABLET, DAILY
     Route: 065
  5. RIBAVIRIN. [Suspect]
     Active Substance: RIBAVIRIN
     Indication: HEPATITIS C
     Route: 065
     Dates: start: 20140324, end: 20140711
  6. RIBAVIRIN. [Suspect]
     Active Substance: RIBAVIRIN
     Route: 065
     Dates: start: 20140122, end: 20140323
  7. LOPERAMIDE [Concomitant]
     Active Substance: LOPERAMIDE
     Indication: DIARRHOEA
     Dosage: DOSAGE FORM: UNSPECIFIED
     Route: 065
  8. INCIVO [Suspect]
     Active Substance: TELAPREVIR
     Indication: HEPATITIS C
     Route: 048
     Dates: start: 20140124, end: 20140318

REACTIONS (3)
  - Rash [Recovered/Resolved]
  - Periorbital oedema [Recovered/Resolved]
  - Anal abscess [Recovered/Resolved]

NARRATIVE: CASE EVENT DATE: 20140318
